FAERS Safety Report 7804473-3 (Version None)
Quarter: 2011Q4

REPORT INFORMATION
  Report Type: 
  Country: None (occurrence: None)
  Receive Date: 20111010
  Receipt Date: 20110927
  Transmission Date: 20120403
  Serious: Yes (Hospitalization)
  Sender: FDA-Public Use
  Company Number: US-BAYER-2011-004874

PATIENT
  Age: 22 Year
  Sex: Female
  Weight: 100 kg

DRUGS (3)
  1. NSAID'S [Concomitant]
     Dosage: UNK
     Dates: start: 20090201
  2. YASMIN [Suspect]
     Dosage: UNK
     Dates: start: 19950101, end: 20080101
  3. ANTI-ASTHMATICS [Concomitant]

REACTIONS (2)
  - PAIN [None]
  - GALLBLADDER DISORDER [None]
